FAERS Safety Report 17546236 (Version 1)
Quarter: 2020Q1

REPORT INFORMATION
  Report Type: Report from Study
  Country: NL (occurrence: NL)
  Receive Date: 20200316
  Receipt Date: 20200316
  Transmission Date: 20200409
  Serious: Yes (Other)
  Sender: FDA-Public Use
  Company Number: NL-MYLANLABS-2019M1091930

PATIENT
  Age: 31 Year
  Sex: Female
  Weight: 72 kg

DRUGS (3)
  1. GLATIRAMEERACETAAT MYLAN 40 MG/ML [Suspect]
     Active Substance: GLATIRAMER ACETATE
     Dosage: UNK
  2. HYDROXOCOBALAMINE [Concomitant]
     Active Substance: HYDROXOCOBALAMIN
     Indication: PRODUCT USED FOR UNKNOWN INDICATION
     Dosage: 1 INJECTION, Q2W
     Route: 065
  3. GLATIRAMEERACETAAT MYLAN 40 MG/ML [Suspect]
     Active Substance: GLATIRAMER ACETATE
     Indication: MULTIPLE SCLEROSIS
     Dosage: 40 MILLIGRAM, 3XW
     Route: 058
     Dates: start: 20190823

REACTIONS (4)
  - Therapeutic product effect incomplete [Unknown]
  - Influenza like illness [Recovered/Resolved]
  - Injection site pruritus [Not Recovered/Not Resolved]
  - Injection site induration [Not Recovered/Not Resolved]

NARRATIVE: CASE EVENT DATE: 2019
